FAERS Safety Report 5764522-3 (Version None)
Quarter: 2008Q2

REPORT INFORMATION
  Report Type: 
  Country: None (occurrence: None)
  Receive Date: 20080610
  Receipt Date: 20080529
  Transmission Date: 20081010
  Serious: Yes (Other)
  Sender: FDA-Public Use
  Company Number: DE-PFIZER INC-2008034148

PATIENT
  Sex: Male
  Weight: 105 kg

DRUGS (5)
  1. LYRICA [Suspect]
     Indication: DETOXIFICATION
     Route: 048
  2. LYRICA [Suspect]
     Indication: ANXIETY
  3. LYRICA [Suspect]
     Indication: RESTLESSNESS
  4. LYRICA [Suspect]
     Indication: CONVULSION PROPHYLAXIS
  5. VENLAFAXINE HCL [Concomitant]
     Route: 048

REACTIONS (3)
  - CARDIOVASCULAR DISORDER [None]
  - DRUG DEPENDENCE [None]
  - OVERDOSE [None]
